FAERS Safety Report 5863316-8 (Version None)
Quarter: 2008Q3

REPORT INFORMATION
  Report Type: 
  Country: None (occurrence: None)
  Receive Date: 20080828
  Receipt Date: 20080819
  Transmission Date: 20090109
  Serious: Yes (Other)
  Sender: FDA-Public Use
  Company Number: PHHY2008BR18536

PATIENT
  Age: 38 Year
  Sex: Female

DRUGS (1)
  1. ZELMAC [Suspect]
     Indication: CONSTIPATION
     Dosage: 6 MG/DAY ; 1 TABLET/DAY
     Route: 048

REACTIONS (3)
  - BLOOD GLUCOSE INCREASED [None]
  - HEADACHE [None]
  - TACHYCARDIA [None]
